FAERS Safety Report 19974019 (Version 1)
Quarter: 2021Q4

REPORT INFORMATION
  Report Type: Spontaneous
  Country: FR (occurrence: FR)
  Receive Date: 20211020
  Receipt Date: 20211020
  Transmission Date: 20220303
  Serious: Yes (Hospitalization)
  Sender: FDA-Public Use
  Company Number: None

PATIENT
  Age: 55 Year
  Sex: Female
  Weight: 45 kg

DRUGS (2)
  1. DOCETAXEL [Suspect]
     Active Substance: DOCETAXEL
     Indication: Invasive ductal breast carcinoma
     Dosage: C1 ON 15/04/2021, C2 ON 07/05/2021, C3 ON 28/05/2021, C4 ON 18/06/2021
     Route: 042
     Dates: start: 20210415, end: 20210618
  2. TRAZIMERA [Suspect]
     Active Substance: TRASTUZUMAB-QYYP
     Indication: Invasive ductal breast carcinoma
     Dosage: 365 MG AT C1 THEN 300 MG C1 ON 15/04/2021, C2 ON 07/05/2021, C3 ON 28/05/2021, C4 ON 18/06/2021
     Route: 042
     Dates: start: 20210415, end: 20210618

REACTIONS (1)
  - Capillary leak syndrome [Unknown]

NARRATIVE: CASE EVENT DATE: 20210611
